FAERS Safety Report 8281403-4 (Version None)
Quarter: 2012Q2

REPORT INFORMATION
  Report Type: 
  Country: None (occurrence: None)
  Receive Date: 20120410
  Receipt Date: 20120410
  Transmission Date: 20120825
  Serious: Yes (Other)
  Sender: FDA-Public Use
  Company Number: None

PATIENT
  Sex: Female
  Weight: 79.3795 kg

DRUGS (1)
  1. RELPAX [Suspect]
     Indication: MIGRAINE
     Dosage: 1 TABLET ORAL
     Route: 048
     Dates: start: 20110901, end: 20120301

REACTIONS (2)
  - CHEST PAIN [None]
  - MUSCULOSKELETAL DISCOMFORT [None]
